FAERS Safety Report 6849698-9 (Version None)
Quarter: 2010Q3

REPORT INFORMATION
  Report Type: 
  Country: None (occurrence: None)
  Receive Date: 20100716
  Receipt Date: 20071003
  Transmission Date: 20110219
  Serious: No
  Sender: FDA-Public Use
  Company Number: US-PFIZER INC-2007084182

PATIENT
  Sex: Male
  Weight: 84.09 kg

DRUGS (4)
  1. CHANTIX [Suspect]
     Dates: end: 20070101
  2. LISINOPRIL [Concomitant]
  3. LIPITOR [Concomitant]
     Indication: BLOOD CHOLESTEROL ABNORMAL
  4. NEXIUM [Concomitant]

REACTIONS (3)
  - ABNORMAL DREAMS [None]
  - INITIAL INSOMNIA [None]
  - INSOMNIA [None]
